FAERS Safety Report 13917573 (Version 3)
Quarter: 2017Q4

REPORT INFORMATION
  Report Type: Spontaneous
  Country: BR (occurrence: BR)
  Receive Date: 20170829
  Receipt Date: 20171124
  Transmission Date: 20180320
  Serious: Yes (Hospitalization)
  Sender: FDA-Public Use
  Company Number: PHHY2017BR125814

PATIENT
  Sex: Female
  Weight: 75 kg

DRUGS (1)
  1. FORASEQ [Suspect]
     Active Substance: BUDESONIDE\FORMOTEROL FUMARATE
     Indication: BRONCHITIS
     Dosage: UNK, BID (60+ 60 CAPSULES)
     Route: 055
     Dates: start: 20170809

REACTIONS (4)
  - Pneumonia [Recovering/Resolving]
  - Underdose [Recovering/Resolving]
  - Device malfunction [Recovering/Resolving]
  - Drug ineffective [Recovering/Resolving]
